FAERS Safety Report 8436542-1 (Version None)
Quarter: 2012Q2

REPORT INFORMATION
  Report Type: 
  Country: None (occurrence: None)
  Receive Date: 20120614
  Receipt Date: 20120606
  Transmission Date: 20120825
  Serious: Yes (Other)
  Sender: FDA-Public Use
  Company Number: ES-GLAXOSMITHKLINE-B0807985A

PATIENT
  Age: 70 Year
  Sex: Female

DRUGS (1)
  1. LAPATINIB [Suspect]
     Indication: BREAST CANCER METASTATIC
     Route: 065

REACTIONS (5)
  - DISEASE PROGRESSION [None]
  - VOMITING [None]
  - INCORRECT DOSE ADMINISTERED [None]
  - HEPATOTOXICITY [None]
  - RASH [None]
